FAERS Safety Report 9735003 (Version 1)
Quarter: 2013Q4

REPORT INFORMATION
  Report Type: Report from Study
  Country: US (occurrence: US)
  Receive Date: 20131206
  Receipt Date: 20131206
  Transmission Date: 20140711
  Serious: Yes (Death)
  Sender: FDA-Public Use
  Company Number: US-ASTRAZENECA-2013SE88724

PATIENT
  Age: 84 Year
  Sex: Male
  Weight: 59 kg

DRUGS (2)
  1. SYMBICORT [Suspect]
     Indication: EMPHYSEMA
     Dosage: UNKNOWN
     Route: 055
     Dates: end: 201310
  2. OXYCODONE [Concomitant]
     Indication: BACK PAIN

REACTIONS (1)
  - Emphysema [Fatal]
